FAERS Safety Report 24339634 (Version 6)
Quarter: 2025Q2

REPORT INFORMATION
  Report Type: Report from Study
  Country: US (occurrence: US)
  Receive Date: 20240919
  Receipt Date: 20250507
  Transmission Date: 20250716
  Serious: Yes (Hospitalization)
  Sender: TAKEDA
  Company Number: US-TAKEDA-2024TUS031648

PATIENT
  Age: 67 Year
  Sex: Male

DRUGS (5)
  1. MARIBAVIR [Suspect]
     Active Substance: MARIBAVIR
     Indication: Cytomegalovirus infection
     Dosage: 400 MILLIGRAM, BID
     Dates: start: 20240310
  2. MARIBAVIR [Suspect]
     Active Substance: MARIBAVIR
     Dosage: 400 MILLIGRAM, BID
  3. MARIBAVIR [Suspect]
     Active Substance: MARIBAVIR
     Dosage: 400 MILLIGRAM, BID
  4. MARIBAVIR [Suspect]
     Active Substance: MARIBAVIR
     Dosage: 400 MILLIGRAM, BID
  5. MARIBAVIR [Suspect]
     Active Substance: MARIBAVIR
     Dosage: 400 MILLIGRAM, BID
     Dates: end: 202504

REACTIONS (7)
  - Full blood count decreased [Unknown]
  - Haemoglobin decreased [Unknown]
  - Cytomegalovirus test positive [Unknown]
  - Insurance issue [Unknown]
  - Dysgeusia [Unknown]
  - Taste disorder [Unknown]
  - Nausea [Unknown]

NARRATIVE: CASE EVENT DATE: 20250401
